FAERS Safety Report 23498805 (Version 2)
Quarter: 2024Q2

REPORT INFORMATION
  Report Type: Spontaneous
  Country: US (occurrence: US)
  Receive Date: 20240208
  Receipt Date: 20240430
  Transmission Date: 20240716
  Serious: Yes (Hospitalization)
  Sender: FDA-Public Use
  Company Number: US-HALEON-USCH2024AMR006645

PATIENT
  Sex: Female

DRUGS (1)
  1. ROBITUSSIN HONEY MAXIMUM STRENGTH COUGH AND CHEST CONGESTION DM [Suspect]
     Active Substance: DEXTROMETHORPHAN HYDROBROMIDE\GUAIFENESIN
     Indication: Product used for unknown indication
     Route: 065

REACTIONS (1)
  - Psychotic disorder [Unknown]
